FAERS Safety Report 5326474-X (Version None)
Quarter: 2007Q2

REPORT INFORMATION
  Report Type: 
  Country: None (occurrence: None)
  Receive Date: 20070516
  Receipt Date: 20070508
  Transmission Date: 20071010
  Serious: Yes (Hospitalization)
  Sender: FDA-Public Use
  Company Number: US-ROCHE-486895

PATIENT
  Age: 74 Year
  Sex: Female
  Weight: 59.9 kg

DRUGS (9)
  1. FUZEON [Suspect]
     Route: 058
     Dates: start: 20040123, end: 20070130
  2. APTIVUS [Suspect]
     Route: 048
     Dates: start: 20040205, end: 20070130
  3. NORVIR [Concomitant]
     Route: 048
     Dates: start: 20040205, end: 20070130
  4. VIREAD [Concomitant]
     Route: 048
     Dates: start: 20040123, end: 20070130
  5. ZERIT [Concomitant]
     Route: 048
     Dates: start: 20040123, end: 20070130
  6. VIDEX [Concomitant]
     Dates: start: 20040123, end: 20070130
  7. PROCARDIA XL [Concomitant]
     Dates: start: 19960101
  8. LASIX [Concomitant]
     Dates: start: 20060120
  9. K-DUR 10 [Concomitant]
     Dates: start: 20060120

REACTIONS (2)
  - EATON-LAMBERT SYNDROME [None]
  - PARANEOPLASTIC SYNDROME [None]
